FAERS Safety Report 6261916-7 (Version None)
Quarter: 2009Q3

REPORT INFORMATION
  Report Type: 
  Country: None (occurrence: None)
  Receive Date: 20090709
  Receipt Date: 20090629
  Transmission Date: 20100115
  Serious: Yes (Hospitalization)
  Sender: FDA-Public Use
  Company Number: B0581691A

PATIENT
  Sex: Female
  Weight: 48 kg

DRUGS (6)
  1. LAPATINIB [Suspect]
     Indication: BREAST CANCER
     Dosage: 1000MG PER DAY
     Route: 048
     Dates: start: 20080611
  2. TRASTUZUMAB [Suspect]
     Indication: BREAST CANCER
     Dosage: 6MGK EVERY 3 WEEKS
     Route: 042
     Dates: start: 20080610
  3. EUPRESSYL [Concomitant]
  4. LIPANTHYL [Concomitant]
  5. PAROXETINE HCL [Concomitant]
  6. CHEMOTHERAPY [Concomitant]

REACTIONS (6)
  - ALCOHOLISM [None]
  - AMNESIA [None]
  - CONFUSIONAL STATE [None]
  - HEADACHE [None]
  - NAUSEA [None]
  - VOMITING [None]
